FAERS Safety Report 9707621 (Version 1)
Quarter: 2013Q4

REPORT INFORMATION
  Report Type: Spontaneous
  Country: US (occurrence: US)
  Receive Date: 20131125
  Receipt Date: 20131125
  Transmission Date: 20140711
  Serious: No
  Sender: FDA-Public Use
  Company Number: US-TEVA-377186USA

PATIENT
  Age: 26 Year
  Sex: Female
  Weight: 64.01 kg

DRUGS (2)
  1. PARAGARD 380A [Suspect]
     Indication: CONTRACEPTION
     Route: 015
     Dates: start: 20120620, end: 20120820
  2. SYNTHROID [Concomitant]
     Indication: THYROID DISORDER

REACTIONS (1)
  - Device expulsion [Recovered/Resolved]
